FAERS Safety Report 16021254 (Version 1)
Quarter: 2019Q1

REPORT INFORMATION
  Report Type: Spontaneous
  Country: US (occurrence: US)
  Receive Date: 20190228
  Receipt Date: 20190228
  Transmission Date: 20190418
  Serious: Yes (Death)
  Sender: FDA-Public Use
  Company Number: None

PATIENT
  Age: 51 Year
  Sex: Female

DRUGS (4)
  1. HYDROMORPHON [Concomitant]
     Active Substance: HYDROMORPHONE
  2. LIDOCAINE. [Concomitant]
     Active Substance: LIDOCAINE
  3. FAMOTIDINE. [Concomitant]
     Active Substance: FAMOTIDINE
  4. XALKORI [Suspect]
     Active Substance: CRIZOTINIB
     Indication: LUNG NEOPLASM MALIGNANT
     Route: 048
     Dates: start: 20181220

REACTIONS (1)
  - Death [None]

NARRATIVE: CASE EVENT DATE: 20190216
